FAERS Safety Report 25026535 (Version 1)
Quarter: 2025Q1

REPORT INFORMATION
  Report Type: Spontaneous
  Country: JP (occurrence: JP)
  Receive Date: 20250301
  Receipt Date: 20250301
  Transmission Date: 20250409
  Serious: Yes (Hospitalization)
  Sender: AMGEN
  Company Number: JP-AMGEN-JPNSP2024201419

PATIENT
  Age: 60 Year
  Sex: Male
  Weight: 46 kg

DRUGS (10)
  1. EVENITY [Suspect]
     Active Substance: ROMOSOZUMAB-AQQG
     Indication: Osteoporosis
     Dosage: 210 MILLIGRAM, QMO
     Route: 058
     Dates: start: 20200903, end: 20201217
  2. EVENITY [Suspect]
     Active Substance: ROMOSOZUMAB-AQQG
  3. DENOSUMAB [Suspect]
     Active Substance: DENOSUMAB
     Indication: Osteoporosis
     Route: 058
     Dates: start: 20200326, end: 20200903
  4. CELECOXIB [Concomitant]
     Active Substance: CELECOXIB
     Dosage: 100 MILLIGRAM, BID
     Route: 065
     Dates: start: 20190322
  5. REBAMIPIDE [Concomitant]
     Active Substance: REBAMIPIDE
     Dosage: 100 MILLIGRAM, BID
     Route: 065
     Dates: start: 20201119
  6. LOXOPROFEN SODIUM [Concomitant]
     Active Substance: LOXOPROFEN SODIUM
     Dosage: 100 MILLIGRAM, QD/ TAPE
     Dates: start: 20200220
  7. ESAXERENONE [Concomitant]
     Active Substance: ESAXERENONE
     Dosage: 2.5 MILLIGRAM, QD
     Route: 065
     Dates: start: 20201217
  8. IGURATIMOD [Concomitant]
     Active Substance: IGURATIMOD
     Indication: Rheumatoid arthritis
     Dosage: 25 MILLIGRAM, QD
     Route: 065
     Dates: start: 20200806
  9. ELDECALCITOL [Concomitant]
     Active Substance: ELDECALCITOL
     Indication: Osteoporosis
     Dosage: 0.75 MICROGRAM, QD
     Dates: start: 20200326
  10. VONOPRAZAN FUMARATE [Concomitant]
     Active Substance: VONOPRAZAN FUMARATE
     Dosage: 10 MILLIGRAM, QD
     Dates: start: 20190322

REACTIONS (3)
  - Cerebral infarction [Unknown]
  - Hypertension [Unknown]
  - Intervertebral disc protrusion [Unknown]

NARRATIVE: CASE EVENT DATE: 20200903
